FAERS Safety Report 19158293 (Version 1)
Quarter: 2021Q2

REPORT INFORMATION
  Report Type: Spontaneous
  Country: GB (occurrence: GB)
  Receive Date: 20210420
  Receipt Date: 20210420
  Transmission Date: 20210717
  Serious: Yes (Other)
  Sender: FDA-Public Use
  Company Number: GB-SUN PHARMACEUTICAL INDUSTRIES LTD-2021RR-292231

PATIENT
  Age: 40 Year
  Sex: Male

DRUGS (2)
  1. OXALIPLATIN. [Suspect]
     Active Substance: OXALIPLATIN
     Indication: ADENOCARCINOMA OF COLON
     Dosage: 250 MILLIGRAM, UNK
     Route: 065
  2. CAPECITABINE. [Suspect]
     Active Substance: CAPECITABINE
     Indication: ADENOCARCINOMA OF COLON
     Dosage: 20 GRAM, UNK
     Route: 048

REACTIONS (5)
  - Toxicity to various agents [Unknown]
  - Toxic leukoencephalopathy [Unknown]
  - Neurotoxicity [Unknown]
  - Arteriospasm coronary [Unknown]
  - Pulmonary embolism [Unknown]
